FAERS Safety Report 5659607-6 (Version None)
Quarter: 2008Q1

REPORT INFORMATION
  Report Type: 
  Country: None (occurrence: None)
  Receive Date: 20080311
  Receipt Date: 20080229
  Transmission Date: 20080703
  Serious: Yes (Other)
  Sender: FDA-Public Use
  Company Number: JP-ROCHE-545321

PATIENT
  Age: 7 Year
  Sex: Male
  Weight: 24 kg

DRUGS (4)
  1. TAMIFLU [Suspect]
     Dosage: FORM: DRY SYRUP.; ADDITIONAL INDICATION: INFLUENZA B VIRUS INFECTION.
     Route: 048
     Dates: start: 20080129, end: 20080129
  2. PYRINAZIN [Suspect]
     Indication: DRUG USE FOR UNKNOWN INDICATION
     Route: 048
  3. MUCODYNE [Concomitant]
     Indication: DRUG USE FOR UNKNOWN INDICATION
     Route: 048
     Dates: start: 20080129, end: 20080131
  4. ALLERGIN [Concomitant]
     Indication: DRUG USE FOR UNKNOWN INDICATION
     Route: 048
     Dates: start: 20080129, end: 20080131

REACTIONS (1)
  - ABNORMAL BEHAVIOUR [None]
